FAERS Safety Report 6813225-2 (Version None)
Quarter: 2010Q3

REPORT INFORMATION
  Report Type: 
  Country: None (occurrence: None)
  Receive Date: 20100701
  Receipt Date: 20100621
  Transmission Date: 20110219
  Serious: Yes (Other)
  Sender: FDA-Public Use
  Company Number: GB-PFIZER INC-2010037643

PATIENT

DRUGS (4)
  1. SILDENAFIL CITRATE [Suspect]
     Indication: PULMONARY ARTERIAL HYPERTENSION
     Dosage: 20 MG, 3X/DAY
     Dates: start: 20081210, end: 20100318
  2. SILDENAFIL CITRATE [Suspect]
     Indication: PULMONARY EMBOLISM
  3. WARFARIN [Concomitant]
     Dosage: UNK
  4. BOSENTAN [Concomitant]
     Indication: PULMONARY HYPERTENSION
     Dosage: 125 MG, 2X/DAY
     Dates: start: 20070809

REACTIONS (4)
  - RETINAL HAEMORRHAGE [None]
  - RETINAL TEAR [None]
  - VITREOUS DETACHMENT [None]
  - VITREOUS HAEMORRHAGE [None]
